FAERS Safety Report 25207755 (Version 1)
Quarter: 2025Q2

REPORT INFORMATION
  Report Type: Spontaneous
  Country: IT (occurrence: None)
  Receive Date: 20250417
  Receipt Date: 20250417
  Transmission Date: 20250716
  Serious: Yes (Hospitalization)
  Sender: INFORLIFE
  Company Number: IT-INFO-20250078

PATIENT
  Age: 51 Year
  Sex: Female

DRUGS (1)
  1. ACETAMINOPHEN [Suspect]
     Active Substance: ACETAMINOPHEN
     Indication: Pyrexia
     Dosage: NONTHERAPEUTIC DOSES OF PARACETAMOL

REACTIONS (3)
  - Hepatic necrosis [Recovered/Resolved]
  - Renal cortical necrosis [Recovered/Resolved]
  - Overdose [Recovered/Resolved]
